FAERS Safety Report 16532974 (Version 1)
Quarter: 2019Q3

REPORT INFORMATION
  Report Type: Spontaneous
  Country: US (occurrence: US)
  Receive Date: 20190705
  Receipt Date: 20190705
  Transmission Date: 20191004
  Serious: No
  Sender: FDA-Public Use
  Company Number: US-TEVA-2019-US-1071513

PATIENT

DRUGS (1)
  1. PENICILLIN VK 250 MG TABLET [Suspect]
     Active Substance: PENICILLIN V POTASSIUM
     Route: 065

REACTIONS (1)
  - Drug hypersensitivity [Unknown]
